FAERS Safety Report 16729397 (Version 3)
Quarter: 2019Q4

REPORT INFORMATION
  Report Type: Spontaneous
  Country: PL (occurrence: PL)
  Receive Date: 20190822
  Receipt Date: 20191023
  Transmission Date: 20200122
  Serious: Yes (Death, Life-Threatening, Hospitalization, Other)
  Sender: FDA-Public Use
  Company Number: PL-BAYER-2019-150391

PATIENT
  Age: 46 Year
  Sex: Female

DRUGS (10)
  1. ITOPRIDE [Interacting]
     Active Substance: ITOPRIDE
     Indication: GASTROOESOPHAGEAL REFLUX DISEASE
     Dosage: 150 MG, QD
  2. CEFUROXIME AXETIL. [Interacting]
     Active Substance: CEFUROXIME AXETIL
     Indication: PRODUCT USED FOR UNKNOWN INDICATION
     Dosage: UNK
     Route: 065
  3. LEVOFLOXACIN. [Interacting]
     Active Substance: LEVOFLOXACIN
     Indication: PRODUCT USED FOR UNKNOWN INDICATION
     Dosage: UNK
  4. SULFAMETHOXAZOLE;TRIMETHOPRIM [Interacting]
     Active Substance: SULFAMETHOXAZOLE\TRIMETHOPRIM
     Indication: BACTERIAL INFECTION
     Dosage: UNK
     Route: 065
  5. OLANZAPINE. [Interacting]
     Active Substance: OLANZAPINE
     Indication: BIPOLAR DISORDER
     Dosage: 10 MG, QD
     Route: 048
  6. ARIPIPRAZOLE. [Interacting]
     Active Substance: ARIPIPRAZOLE
     Indication: BIPOLAR DISORDER
     Dosage: 7.5 MG, QD
     Route: 048
  7. CIPROFLOXACIN. [Suspect]
     Active Substance: CIPROFLOXACIN
     Indication: URINARY TRACT INFECTION
     Dosage: UNK
     Route: 065
  8. PANTOPRAZOLE [Interacting]
     Active Substance: PANTOPRAZOLE
     Indication: GASTROOESOPHAGEAL REFLUX DISEASE
     Dosage: 40 MG, QD
     Route: 048
  9. NIFUROXAZIDE [Interacting]
     Active Substance: NIFUROXAZIDE
     Indication: URINARY TRACT INFECTION
     Dosage: UNK
  10. AMOXICILLIN AND CLAVULANATE POTASSIUM [Interacting]
     Active Substance: AMOXICILLIN\CLAVULANATE POTASSIUM
     Indication: URINARY TRACT INFECTION
     Dosage: UNK
     Route: 065

REACTIONS (28)
  - Labelled drug-drug interaction medication error [Not Recovered/Not Resolved]
  - Megacolon [Fatal]
  - Inhibitory drug interaction [Not Recovered/Not Resolved]
  - Drug interaction [Not Recovered/Not Resolved]
  - Drug resistance [Unknown]
  - Pseudomembranous colitis [Not Recovered/Not Resolved]
  - Diarrhoea [Not Recovered/Not Resolved]
  - Bacterial test positive [Unknown]
  - General physical health deterioration [Not Recovered/Not Resolved]
  - Urinary tract infection bacterial [Fatal]
  - Breath odour [Unknown]
  - Urine odour abnormal [Not Recovered/Not Resolved]
  - Oral discomfort [Unknown]
  - Peritonitis [Fatal]
  - Dyspepsia [Unknown]
  - Gastrooesophageal reflux disease [Unknown]
  - Condition aggravated [Not Recovered/Not Resolved]
  - Abdominal pain upper [Unknown]
  - Clostridium difficile infection [Not Recovered/Not Resolved]
  - Dysbiosis [Unknown]
  - Pyrexia [Not Recovered/Not Resolved]
  - Abdominal pain upper [Not Recovered/Not Resolved]
  - Urine odour abnormal [Fatal]
  - Trimethylaminuria [Not Recovered/Not Resolved]
  - Intestinal perforation [Fatal]
  - Drug ineffective [Unknown]
  - Dysgeusia [Not Recovered/Not Resolved]
  - White blood cells urine positive [Unknown]
